FAERS Safety Report 18691891 (Version 1)
Quarter: 2021Q1

REPORT INFORMATION
  Report Type: Spontaneous
  Country: US (occurrence: US)
  Receive Date: 20210102
  Receipt Date: 20210102
  Transmission Date: 20210419
  Serious: No
  Sender: FDA-Public Use
  Company Number: US-AUROBINDO-AUR-APL-2020-050685

PATIENT
  Sex: Male

DRUGS (4)
  1. SILODOSIN CAPSULES 4 MG [Suspect]
     Active Substance: SILODOSIN
     Indication: PRODUCT USED FOR UNKNOWN INDICATION
     Dosage: UNK
     Route: 065
  2. SILODOSIN CAPSULES 4 MG [Suspect]
     Active Substance: SILODOSIN
     Dosage: TOOK ANOTHER PILL
     Route: 065
  3. SILODOSIN CAPSULES 4 MG [Suspect]
     Active Substance: SILODOSIN
     Dosage: 1 DOSAGE FORM
     Route: 065
  4. SILODOSIN CAPSULES 4 MG [Suspect]
     Active Substance: SILODOSIN
     Dosage: WAITED A COUPLE OF DAYS AND TOOK 3RD PILL
     Route: 065

REACTIONS (3)
  - Product dose omission issue [Unknown]
  - Drug ineffective [Unknown]
  - Product quality issue [Unknown]
